FAERS Safety Report 4268179-2 (Version None)
Quarter: 2004Q1

REPORT INFORMATION
  Report Type: 
  Country: None (occurrence: None)
  Receive Date: 20040109
  Receipt Date: 20031016
  Transmission Date: 20041129
  Serious: Yes (Other)
  Sender: FDA-Public Use
  Company Number: WAES 0310FRA00059

PATIENT
  Age: 52 Year
  Sex: Male

DRUGS (2)
  1. COSOPT [Suspect]
     Route: 047
     Dates: start: 20020101
  2. LATANOPROST [Concomitant]
     Route: 047
     Dates: start: 20020101

REACTIONS (2)
  - CARDIAC FAILURE [None]
  - MEDICATION ERROR [None]
